FAERS Safety Report 10094566 (Version 2)
Quarter: 2015Q2

REPORT INFORMATION
  Report Type: Spontaneous
  Country: US (occurrence: None)
  Receive Date: 20140418
  Receipt Date: 20150508
  Transmission Date: 20150821
  Serious: Yes (Other)
  Sender: FDA-Public Use
  Company Number: UTC-047175

PATIENT
  Age: 73 Year
  Sex: Female
  Weight: 60.78 kg

DRUGS (2)
  1. LETAIRIS (AMBRISENTAN) [Concomitant]
  2. TYVASO [Suspect]
     Active Substance: TREPROSTINIL
     Indication: COR PULMONALE CHRONIC
     Route: 055
     Dates: start: 20131223

REACTIONS (1)
  - Mass excision [None]

NARRATIVE: CASE EVENT DATE: 2014
